FAERS Safety Report 9136637 (Version 1)
Quarter: 2013Q1

REPORT INFORMATION
  Report Type: Spontaneous
  Country: US (occurrence: US)
  Receive Date: 20130304
  Receipt Date: 20130304
  Transmission Date: 20140127
  Serious: No
  Sender: FDA-Public Use
  Company Number: US-ABBOTT-12P-163-0998380-00

PATIENT
  Age: 8 Year
  Sex: Female
  Weight: 27.24 kg

DRUGS (1)
  1. ANDROGEL [Suspect]
     Indication: EXPOSURE VIA FATHER
     Dosage: UNKNOWN AMOUNT OF EXPOSURE THROUGH SKIN TO SKIN CONTACT.

REACTIONS (3)
  - Breast pain [Not Recovered/Not Resolved]
  - Rash [Not Recovered/Not Resolved]
  - Accidental exposure to product [Not Recovered/Not Resolved]
